FAERS Safety Report 5123114-X (Version None)
Quarter: 2006Q4

REPORT INFORMATION
  Report Type: 
  Country: None (occurrence: None)
  Receive Date: 20061005
  Receipt Date: 20060914
  Transmission Date: 20070319
  Serious: Yes (Other)
  Sender: FDA-Public Use
  Company Number: US200609003413

PATIENT
  Age: 77 Year
  Sex: Female
  Weight: 62.6 kg

DRUGS (3)
  1. EVISTA [Suspect]
     Indication: OSTEOPOROSIS
     Dosage: ORAL
     Route: 048
  2. CALCIUM WITH VITAMIN D [Concomitant]
  3. FLAXSEED OIL              (LINSEED OIL) [Concomitant]

REACTIONS (4)
  - BASAL CELL CARCINOMA [None]
  - BLOOD CHOLESTEROL INCREASED [None]
  - BONE DENSITY DECREASED [None]
  - CALCIUM IONISED INCREASED [None]
